FAERS Safety Report 14975586 (Version 1)
Quarter: 2018Q2

REPORT INFORMATION
  Report Type: Spontaneous
  Country: US (occurrence: US)
  Receive Date: 20180515
  Receipt Date: 20180515
  Transmission Date: 20180711
  Serious: Yes (Life-Threatening, Hospitalization)
  Sender: FDA-Public Use
  Company Number: None

PATIENT
  Age: 79 Year
  Sex: Male

DRUGS (2)
  1. RIVAROXABAN [Suspect]
     Active Substance: RIVAROXABAN
     Indication: PULMONARY EMBOLISM
     Route: 048
     Dates: start: 20180213, end: 20180225
  2. RIVAROXABAN [Suspect]
     Active Substance: RIVAROXABAN
     Indication: ATRIAL FIBRILLATION

REACTIONS (10)
  - Cardiogenic shock [None]
  - Acute kidney injury [None]
  - Cardiac tamponade [None]
  - Pericardial haemorrhage [None]
  - Haemorrhage [None]
  - Fluid overload [None]
  - International normalised ratio increased [None]
  - Shock [None]
  - Coagulopathy [None]
  - Respiratory failure [None]

NARRATIVE: CASE EVENT DATE: 20180225
